FAERS Safety Report 4612392-9 (Version None)
Quarter: 2005Q1

REPORT INFORMATION
  Report Type: 
  Country: None (occurrence: None)
  Receive Date: 20050316
  Receipt Date: 20050308
  Transmission Date: 20050727
  Serious: No
  Sender: FDA-Public Use
  Company Number: TAP2005Q00395

PATIENT
  Age: 34 Year
  Sex: Female

DRUGS (3)
  1. LUPRON DEPOT-3 [Suspect]
     Indication: UTERINE LEIOMYOMA
     Dosage: 3.75 MG
  2. IRON (IRON) [Concomitant]
  3. IBUPROFEN [Concomitant]

REACTIONS (7)
  - ABDOMINAL PAIN [None]
  - ANAL DISCOMFORT [None]
  - CONDITION AGGRAVATED [None]
  - GASTROINTESTINAL EROSION [None]
  - NECROSIS [None]
  - RECTAL HAEMORRHAGE [None]
  - UTERINE LEIOMYOMA [None]
